FAERS Safety Report 12195586 (Version 1)
Quarter: 2016Q1

REPORT INFORMATION
  Report Type: Spontaneous
  Country: US (occurrence: US)
  Receive Date: 20160321
  Receipt Date: 20160321
  Transmission Date: 20160526
  Serious: Yes (Other)
  Sender: FDA-Public Use
  Company Number: US-LPDUSPRD-20160229

PATIENT
  Age: 53 Year
  Sex: Male

DRUGS (3)
  1. NOREPINEPHRINE [Suspect]
     Active Substance: NOREPINEPHRINE\NOREPINEPHRINE BITARTRATE
     Dosage: 0.08 MICRO/KG/MIN
     Route: 042
  2. VASOPRESSIN INJECTION, USP (0410-10) [Suspect]
     Active Substance: VASOPRESSIN
     Dosage: 0.8 UNITS/MIN
     Route: 042
  3. EPINEPHRINE INJECTION, USP (1071-25) [Concomitant]
     Active Substance: EPINEPHRINE
     Dosage: 0.15 MCG/KG/MIN
     Route: 042

REACTIONS (4)
  - Mitral valve incompetence [Recovering/Resolving]
  - Cardiac ventricular disorder [Recovering/Resolving]
  - Cardiac failure [Recovering/Resolving]
  - Myocardial reperfusion injury [Recovering/Resolving]
